FAERS Safety Report 24182765 (Version 1)
Quarter: 2024Q3

REPORT INFORMATION
  Report Type: Report from Study
  Country: US (occurrence: US)
  Receive Date: 20240807
  Receipt Date: 20240807
  Transmission Date: 20241016
  Serious: Yes (Disabling)
  Sender: ASTELLAS
  Company Number: US-ASTELLAS-2024US022156

PATIENT
  Age: 24 Year
  Sex: Female

DRUGS (1)
  1. ISAVUCONAZOLE [Suspect]
     Active Substance: ISAVUCONAZOLE
     Indication: Product used for unknown indication
     Route: 048
     Dates: start: 20240704

REACTIONS (4)
  - Inflammation [Unknown]
  - Peripheral swelling [Unknown]
  - Underdose [Unknown]
  - Off label use [Unknown]

NARRATIVE: CASE EVENT DATE: 20240704
